FAERS Safety Report 9811271 (Version 2)
Quarter: 2015Q4

REPORT INFORMATION
  Report Type: Spontaneous
  Country: US (occurrence: US)
  Receive Date: 20140110
  Receipt Date: 20151228
  Transmission Date: 20160305
  Serious: Yes (Hospitalization, Other)
  Sender: FDA-Public Use
  Company Number: US-SANOFI-AVENTIS-2013SA036372

PATIENT
  Age: 52 Year
  Sex: Female

DRUGS (9)
  1. MOBIC [Concomitant]
     Active Substance: MELOXICAM
  2. PLAVIX [Suspect]
     Active Substance: CLOPIDOGREL BISULFATE
     Indication: STENT PLACEMENT
     Route: 048
     Dates: start: 20110323, end: 20110817
  3. OMEPRAZOLE. [Concomitant]
     Active Substance: OMEPRAZOLE
  4. PLAVIX [Suspect]
     Active Substance: CLOPIDOGREL BISULFATE
     Indication: ACUTE CORONARY SYNDROME
     Route: 048
     Dates: start: 20110323, end: 20110817
  5. ULTRACET [Concomitant]
     Active Substance: ACETAMINOPHEN\TRAMADOL HYDROCHLORIDE
     Dosage: 37.5/325MG Q4
  6. PROZAC [Concomitant]
     Active Substance: FLUOXETINE HYDROCHLORIDE
     Dosage: NIGHTLY
  7. TRAZODONE [Concomitant]
     Active Substance: TRAZODONE HYDROCHLORIDE
     Dosage: NIGHTLY
  8. DICLOFENAC [Concomitant]
     Active Substance: DICLOFENAC
     Dosage: Q4
  9. ASPIRIN. [Concomitant]
     Active Substance: ASPIRIN

REACTIONS (3)
  - Haematoma [Recovered/Resolved]
  - Gastrointestinal haemorrhage [Recovered/Resolved]
  - Intra-abdominal haemorrhage [Recovered/Resolved]

NARRATIVE: CASE EVENT DATE: 20110818
